FAERS Safety Report 10559974 (Version 2)
Quarter: 2014Q4

REPORT INFORMATION
  Report Type: Spontaneous
  Country: JP (occurrence: None)
  Receive Date: 20141030
  Receipt Date: 20141112
  Transmission Date: 20150529
  Serious: Yes (Hospitalization)
  Sender: FDA-Public Use
  Company Number: JP-015751

PATIENT
  Age: 11 Year
  Sex: Male
  Weight: 32.5 kg

DRUGS (1)
  1. MINIRIN [Suspect]
     Active Substance: DESMOPRESSIN ACETATE
     Indication: DIABETES INSIPIDUS
     Route: 045
     Dates: start: 20030423, end: 200601

REACTIONS (3)
  - Hyponatraemia [None]
  - Seizure [None]
  - Altered state of consciousness [None]
